FAERS Safety Report 5340144-3 (Version None)
Quarter: 2007Q2

REPORT INFORMATION
  Report Type: 
  Country: None (occurrence: None)
  Receive Date: 20070531
  Receipt Date: 20070516
  Transmission Date: 20071010
  Serious: Yes (Hospitalization, Other)
  Sender: FDA-Public Use
  Company Number: US-BAYER-200613967BWH

PATIENT
  Age: 57 Year
  Sex: Female
  Weight: 61 kg

DRUGS (11)
  1. NEXAVAR [Suspect]
     Indication: RENAL CELL CARCINOMA STAGE UNSPECIFIED
     Dosage: TOTAL DAILY DOSE: 400 MG  UNIT DOSE: 200 MG
     Route: 048
     Dates: start: 20060401
  2. NEXAVAR [Suspect]
     Dosage: TOTAL DAILY DOSE: 800 MG  UNIT DOSE: 200 MG
     Route: 048
     Dates: start: 20060429, end: 20060101
  3. NEXAVAR [Suspect]
     Dosage: TOTAL DAILY DOSE: 600 MG  UNIT DOSE: 200 MG
     Route: 048
     Dates: start: 20060401, end: 20070415
  4. COUMADIN [Suspect]
     Indication: DRUG USE FOR UNKNOWN INDICATION
     Dates: end: 20070401
  5. KEPPRA [Concomitant]
  6. ZOMETA [Concomitant]
  7. PROCRIT [Concomitant]
  8. DILANTIN [Concomitant]
     Dates: end: 20070401
  9. NEURONTIN [Concomitant]
     Dates: end: 20070401
  10. MULTIPLE VITAMIN SUPPLEMENTS [Concomitant]
  11. HERBAL LIVER AND KIDNEY CLEANSE [Concomitant]

REACTIONS (14)
  - ABDOMINAL PAIN [None]
  - ASTHENIA [None]
  - COMA [None]
  - CONSTIPATION [None]
  - DUODENAL ULCER HAEMORRHAGE [None]
  - HYPOPROTHROMBINAEMIA [None]
  - HYPOTENSION [None]
  - ILL-DEFINED DISORDER [None]
  - LOSS OF CONSCIOUSNESS [None]
  - MELAENA [None]
  - PAIN IN EXTREMITY [None]
  - PALMAR-PLANTAR ERYTHRODYSAESTHESIA SYNDROME [None]
  - RECTAL HAEMORRHAGE [None]
  - THROMBOCYTOPENIA [None]
